FAERS Safety Report 25674897 (Version 1)
Quarter: 2025Q3

REPORT INFORMATION
  Report Type: Spontaneous
  Country: CH (occurrence: CH)
  Receive Date: 20250813
  Receipt Date: 20250813
  Transmission Date: 20251020
  Serious: Yes (Other)
  Sender: MYLAN
  Company Number: CH-MYLANLABS-2025M1065708

PATIENT
  Age: 32 Year
  Sex: Male

DRUGS (2)
  1. XANAX [Suspect]
     Active Substance: ALPRAZOLAM
     Indication: Product used for unknown indication
  2. HALDOL [Suspect]
     Active Substance: HALOPERIDOL
     Indication: Product used for unknown indication

REACTIONS (6)
  - Drug dependence [Unknown]
  - Aggression [Unknown]
  - Drug abuse [Unknown]
  - Overdose [Unknown]
  - Feeling abnormal [Unknown]
  - Withdrawal syndrome [Unknown]
